FAERS Safety Report 4316292-3 (Version None)
Quarter: 2004Q1

REPORT INFORMATION
  Report Type: 
  Country: None (occurrence: None)
  Receive Date: 20040311
  Receipt Date: 20040302
  Transmission Date: 20041129
  Serious: Yes (Hospitalization, Disabling, Other)
  Sender: FDA-Public Use
  Company Number: 2004-03-0085

PATIENT
  Age: 55 Year
  Sex: Female

DRUGS (2)
  1. INTERFERON ALFA-2B INJECTABLE [Suspect]
     Indication: HEPATITIS C
     Dosage: 6 MU TIW SUBCUTANEOUS
     Route: 058
     Dates: start: 20030201, end: 20030401
  2. REBETOL [Suspect]
     Indication: HEPATITIS C
     Dosage: 1000-600+MG/D ORAL
     Route: 048
     Dates: start: 20030201, end: 20030401

REACTIONS (4)
  - ANAEMIA [None]
  - BLOOD PRESSURE INCREASED [None]
  - BODY TEMPERATURE INCREASED [None]
  - PHLEBITIS [None]
